FAERS Safety Report 5627239-1 (Version None)
Quarter: 2008Q1

REPORT INFORMATION
  Report Type: 
  Country: None (occurrence: None)
  Receive Date: 20080128
  Receipt Date: 20070817
  Transmission Date: 20080703
  Serious: Yes (Other)
  Sender: FDA-Public Use
  Company Number: CTI_00920_2007

PATIENT
  Sex: Male

DRUGS (1)
  1. ZYFLO [Suspect]
     Indication: ASTHMA
     Dosage: DF, QID
     Dates: start: 20070701, end: 20070817

REACTIONS (2)
  - ADVERSE EVENT [None]
  - HEPATIC ENZYME INCREASED [None]
